FAERS Safety Report 20887275 (Version 1)
Quarter: 2022Q2

REPORT INFORMATION
  Report Type: Spontaneous
  Country: BR (occurrence: BR)
  Receive Date: 20220528
  Receipt Date: 20220528
  Transmission Date: 20220720
  Serious: Yes (Hospitalization, Other)
  Sender: FDA-Public Use
  Company Number: BR-TEVA BRAZIL-2022-BR-2039765

PATIENT
  Age: 36 Year
  Sex: Female

DRUGS (3)
  1. COPAXONE [Suspect]
     Active Substance: GLATIRAMER ACETATE
     Indication: Multiple sclerosis
     Dosage: 20 MILLIGRAM DAILY;
     Route: 065
     Dates: start: 2008, end: 2021
  2. DEVICE [Suspect]
     Active Substance: DEVICE
     Route: 065
  3. VITAMIN D NOS [Concomitant]
     Active Substance: VITAMIN D NOS

REACTIONS (18)
  - Multiple sclerosis relapse [Unknown]
  - Hypoaesthesia [Recovering/Resolving]
  - Vision blurred [Recovering/Resolving]
  - Asthenia [Unknown]
  - Balance disorder [Not Recovered/Not Resolved]
  - Fatigue [Recovering/Resolving]
  - Memory impairment [Recovering/Resolving]
  - Speech disorder [Recovering/Resolving]
  - Gait disturbance [Unknown]
  - Dizziness [Not Recovered/Not Resolved]
  - Injection site pain [Unknown]
  - Injection site discolouration [Recovered/Resolved]
  - Injection site scar [Recovered/Resolved]
  - Instillation site haemorrhage [Unknown]
  - Injection site swelling [Recovering/Resolving]
  - Wrong technique in product usage process [Unknown]
  - Device breakage [Unknown]
  - Pain [Unknown]

NARRATIVE: CASE EVENT DATE: 20180101
